FAERS Safety Report 6506941-3 (Version None)
Quarter: 2009Q4

REPORT INFORMATION
  Report Type: 
  Country: None (occurrence: None)
  Receive Date: 20091221
  Receipt Date: 20091210
  Transmission Date: 20100525
  Serious: Yes (Life-Threatening, Disabling, Other)
  Sender: FDA-Public Use
  Company Number: CH-BAYER-200923270GPV

PATIENT
  Sex: Female

DRUGS (1)
  1. YASMIN [Suspect]
     Indication: DRUG USE FOR UNKNOWN INDICATION
     Route: 048

REACTIONS (4)
  - INTRACRANIAL VENOUS SINUS THROMBOSIS [None]
  - PULMONARY EMBOLISM [None]
  - UNEVALUABLE EVENT [None]
  - VENOUS THROMBOSIS LIMB [None]
